FAERS Safety Report 17615446 (Version 1)
Quarter: 2020Q2

REPORT INFORMATION
  Report Type: Spontaneous
  Country: US (occurrence: US)
  Receive Date: 20200402
  Receipt Date: 20200402
  Transmission Date: 20200713
  Serious: No
  Sender: FDA-Public Use
  Company Number: US-JNJFOC-20200400916

PATIENT
  Age: 63 Year
  Sex: Male

DRUGS (2)
  1. ERLEADA [Suspect]
     Active Substance: APALUTAMIDE
     Dosage: DECREASED BY 1/2 TABLET
     Route: 048
     Dates: start: 20200226
  2. ERLEADA [Suspect]
     Active Substance: APALUTAMIDE
     Indication: PRODUCT USED FOR UNKNOWN INDICATION
     Route: 048
     Dates: start: 20200131

REACTIONS (7)
  - Off label use [Unknown]
  - Hot flush [Recovering/Resolving]
  - Fatigue [Unknown]
  - Arthralgia [Unknown]
  - Rash [Recovering/Resolving]
  - Hypertension [Unknown]
  - Heart rate increased [Unknown]

NARRATIVE: CASE EVENT DATE: 2020
